FAERS Safety Report 5972587-9 (Version None)
Quarter: 2008Q4

REPORT INFORMATION
  Report Type: 
  Country: None (occurrence: None)
  Receive Date: 20081201
  Receipt Date: 20081120
  Transmission Date: 20090506
  Serious: Yes (Other)
  Sender: FDA-Public Use
  Company Number: CA-JNJFOC-20081002771

PATIENT
  Sex: Male

DRUGS (7)
  1. EXTRA STRENGTH TYLENOL [Suspect]
     Indication: ARTHRITIS
     Route: 048
  2. EXTRA STRENGTH TYLENOL [Suspect]
     Indication: BACK PAIN
     Dosage: 2000-3000MG, FREQUENCY UNKNOWN
     Route: 048
  3. VASOTEC [Suspect]
     Indication: HYPERTENSION
  4. LIPITOR [Concomitant]
  5. ELTROXIN [Concomitant]
  6. HYDROCHLOROTHIAZIDE [Concomitant]
  7. CELEBREX [Concomitant]

REACTIONS (1)
  - BLOOD CREATININE INCREASED [None]
